FAERS Safety Report 12433567 (Version 1)
Quarter: 2016Q2

REPORT INFORMATION
  Report Type: Spontaneous
  Country: US (occurrence: US)
  Receive Date: 20160603
  Receipt Date: 20160603
  Transmission Date: 20160815
  Serious: Yes (Other)
  Sender: FDA-Public Use
  Company Number: US-SA-2016SA104771

PATIENT
  Age: 68 Year
  Sex: Female

DRUGS (2)
  1. SOLOSTAR [Concomitant]
     Active Substance: DEVICE
  2. LANTUS SOLOSTAR [Suspect]
     Active Substance: INSULIN GLARGINE
     Indication: TYPE 2 DIABETES MELLITUS
     Dosage: START DATE: 8-9 YERAS AGO DOSE:160 UNIT(S)
     Route: 065

REACTIONS (3)
  - Lung neoplasm malignant [Unknown]
  - Cataract [Unknown]
  - Dyspnoea [Unknown]

NARRATIVE: CASE EVENT DATE: 2010
